FAERS Safety Report 24363343 (Version 1)
Quarter: 2024Q3

REPORT INFORMATION
  Report Type: Spontaneous
  Country: US (occurrence: None)
  Receive Date: 20240925
  Receipt Date: 20240925
  Transmission Date: 20241017
  Serious: Yes (Death)
  Sender: Public
  Company Number: None

PATIENT
  Age: 51 Year
  Sex: Male

DRUGS (12)
  1. DESVENLAFAXINE [Suspect]
     Active Substance: DESVENLAFAXINE
     Dosage: FREQUENCY : DAILY;?
     Route: 048
     Dates: start: 20240817, end: 20240820
  2. HYDROXYZINE [Suspect]
     Active Substance: HYDROXYZINE HYDROCHLORIDE
     Dosage: FREQUENCY : AT BEDTIME;?
     Route: 048
     Dates: start: 20240821
  3. LORAZEPAM [Suspect]
     Active Substance: LORAZEPAM
  4. potassium 10 meQ daily [Concomitant]
  5. montelukast 10 mg daily [Concomitant]
  6. sumatriptan 100 mg prn [Concomitant]
  7. magnesium otc bid [Concomitant]
  8. glucosamine 500 mg tid [Concomitant]
  9. melatonin 10 mg hs [Concomitant]
  10. cetirizine 10 mg daily [Concomitant]
  11. Xopenex HFA prn [Concomitant]
  12. NABUMETONE [Concomitant]
     Active Substance: NABUMETONE

REACTIONS (20)
  - Completed suicide [None]
  - Burning sensation [None]
  - Chills [None]
  - Hyperhidrosis [None]
  - Cold sweat [None]
  - Trismus [None]
  - Headache [None]
  - Nausea [None]
  - Decreased appetite [None]
  - Gastrointestinal pain [None]
  - Diarrhoea [None]
  - Insomnia [None]
  - Urine flow decreased [None]
  - Anxiety [None]
  - Euphoric mood [None]
  - Dizziness [None]
  - Electric shock sensation [None]
  - Tinnitus [None]
  - Heart rate increased [None]
  - Restlessness [None]

NARRATIVE: CASE EVENT DATE: 20240829
